FAERS Safety Report 16144500 (Version 1)
Quarter: 2019Q1

REPORT INFORMATION
  Report Type: Spontaneous
  Country: US (occurrence: US)
  Receive Date: 20190227
  Receipt Date: 20190227
  Transmission Date: 20190418
  Serious: No
  Sender: FDA-Public Use
  Company Number: None

PATIENT
  Age: 68 Year
  Sex: Female

DRUGS (3)
  1. HUMIRA [Suspect]
     Active Substance: ADALIMUMAB
     Indication: RHEUMATOID ARTHRITIS
     Route: 058
     Dates: start: 201509
  2. MELOXICAM UNKNOWN GENERIC [Suspect]
     Active Substance: MELOXICAM
  3. MELOXICAM. [Suspect]
     Active Substance: MELOXICAM

REACTIONS (2)
  - Therapy cessation [None]
  - Palpitations [None]
